FAERS Safety Report 11467742 (Version 1)
Quarter: 2015Q3

REPORT INFORMATION
  Report Type: Spontaneous
  Country: US (occurrence: None)
  Receive Date: 20150904
  Receipt Date: 20150904
  Transmission Date: 20151125
  Serious: Yes (Hospitalization)
  Sender: FDA-Public Use
  Company Number: None

PATIENT
  Age: 61 Year
  Sex: Male

DRUGS (1)
  1. LIBRIUM [Suspect]
     Active Substance: CHLORDIAZEPOXIDE HYDROCHLORIDE
     Indication: STRESS
     Dates: start: 20140610, end: 20140701

REACTIONS (9)
  - Alanine aminotransferase increased [None]
  - Blood bilirubin increased [None]
  - Smooth muscle antibody positive [None]
  - Hepatic steatosis [None]
  - Aspartate aminotransferase increased [None]
  - Blood alkaline phosphatase increased [None]
  - Jaundice [None]
  - Influenza like illness [None]
  - Hepatotoxicity [None]

NARRATIVE: CASE EVENT DATE: 20150701
